FAERS Safety Report 9947974 (Version 2)
Quarter: 2014Q1

REPORT INFORMATION
  Report Type: Report from Study
  Country: US (occurrence: US)
  Receive Date: 20140303
  Receipt Date: 20140303
  Transmission Date: 20141002
  Serious: No
  Sender: FDA-Public Use
  Company Number: US-ABBVIE-13P-163-1059018-00

PATIENT
  Age: 42 Year
  Sex: Female

DRUGS (8)
  1. HUMIRA [Suspect]
     Indication: RHEUMATOID ARTHRITIS
     Dates: start: 20130201, end: 20130215
  2. SOMA [Concomitant]
     Indication: PAIN
  3. LORTAB [Concomitant]
     Indication: PAIN
  4. METHOTREXATE [Concomitant]
     Indication: RHEUMATOID ARTHRITIS
     Dosage: 2.5 MG #8 PILLS WEEKLY
  5. DICLOFENAC [Concomitant]
     Indication: RHEUMATOID ARTHRITIS
     Dosage: 75 MG DAILY
  6. KLONOPINE [Concomitant]
     Indication: ANXIETY
     Dosage: 0.5 MG IN THE AM AND 1 MG AT NIGHT
  7. CYMBALTA [Concomitant]
     Indication: DEPRESSION
     Dosage: 120 MG DAILY
  8. SIMVASTATIN [Concomitant]
     Indication: BLOOD CHOLESTEROL INCREASED
     Dosage: 20 MG DAILY

REACTIONS (2)
  - Paraesthesia [Recovered/Resolved]
  - Paraesthesia [Recovered/Resolved]
